FAERS Safety Report 8084791-7 (Version None)
Quarter: 2012Q1

REPORT INFORMATION
  Report Type: 
  Country: None (occurrence: None)
  Receive Date: 20120128
  Receipt Date: 20110326
  Transmission Date: 20120608
  Serious: No
  Sender: FDA-Public Use
  Company Number: US-ABBOTT-11P-163-0714608-00

PATIENT
  Age: 22 Year
  Sex: Female

DRUGS (4)
  1. AMITRIPTYLINE HCL [Concomitant]
     Indication: INSOMNIA
  2. AMITRIPTYLINE HCL [Concomitant]
     Indication: PAIN
     Dosage: AT BEDTIME
  3. ALBUTEROL [Concomitant]
     Indication: ASTHMA
  4. HUMIRA [Suspect]
     Indication: RHEUMATOID ARTHRITIS
     Dosage: INITIAL DOSE
     Dates: start: 20110314

REACTIONS (6)
  - MALAISE [None]
  - COUGH [None]
  - OROPHARYNGEAL PAIN [None]
  - DYSPHONIA [None]
  - CHILLS [None]
  - PYREXIA [None]
